FAERS Safety Report 11907659 (Version 1)
Quarter: 2016Q1

REPORT INFORMATION
  Report Type: Report from Study
  Country: US (occurrence: US)
  Receive Date: 20160111
  Receipt Date: 20160111
  Transmission Date: 20160526
  Serious: No
  Sender: FDA-Public Use
  Company Number: US-ABBVIE-15P-163-1515244-00

PATIENT
  Sex: Female

DRUGS (1)
  1. DUOPA [Suspect]
     Active Substance: CARBIDOPA\LEVODOPA
     Indication: PRODUCT USED FOR UNKNOWN INDICATION
     Dosage: CONTINUOUS 4.5 ML PER HOUR (MAX 5 ML)
     Route: 050
     Dates: start: 20150821

REACTIONS (2)
  - Drug administration error [Unknown]
  - Device issue [Unknown]
